FAERS Safety Report 5346925-4 (Version None)
Quarter: 2007Q2

REPORT INFORMATION
  Report Type: 
  Country: None (occurrence: None)
  Receive Date: 20070430
  Receipt Date: 20070110
  Transmission Date: 20071010
  Serious: No
  Sender: FDA-Public Use
  Company Number: 259944

PATIENT
  Age: 51 Year
  Sex: Female

DRUGS (2)
  1. LEVEMIR [Suspect]
     Indication: DIABETES MELLITUS INSULIN-DEPENDENT
     Dosage: 80-90 IU, QD, SUBCUTANEOUS
     Route: 058
     Dates: start: 20061101, end: 20061228
  2. LEVEMIR [Suspect]
     Indication: DIABETES MELLITUS INSULIN-DEPENDENT
     Dosage: 80-90 IU, QD, SUBCUTANEOUS
     Route: 058
     Dates: end: 20070124

REACTIONS (2)
  - RASH [None]
  - SWELLING [None]
